FAERS Safety Report 5662547-X (Version None)
Quarter: 2008Q1

REPORT INFORMATION
  Report Type: 
  Country: None (occurrence: None)
  Receive Date: 20080310
  Receipt Date: 20080310
  Transmission Date: 20080703
  Serious: No
  Sender: FDA-Public Use
  Company Number: None

PATIENT
  Age: 28 Year
  Sex: Female
  Weight: 58.9676 kg

DRUGS (1)
  1. KENALOG [Suspect]
     Indication: HYPERSENSITIVITY
     Dates: start: 20071025, end: 20071025

REACTIONS (1)
  - INJECTION SITE ATROPHY [None]
